FAERS Safety Report 6936515-1 (Version None)
Quarter: 2010Q3

REPORT INFORMATION
  Report Type: 
  Country: None (occurrence: None)
  Receive Date: 20100823
  Receipt Date: 20100806
  Transmission Date: 20110219
  Serious: No
  Sender: FDA-Public Use
  Company Number: US-PFIZER INC-2010099233

PATIENT
  Sex: Female

DRUGS (2)
  1. DETROL [Suspect]
     Dosage: UNK
  2. TOVIAZ [Suspect]
     Dosage: 4 MG, 1X/DAY

REACTIONS (4)
  - CONSTIPATION [None]
  - DRUG EFFECT DECREASED [None]
  - DRY MOUTH [None]
  - URINARY RETENTION [None]
